FAERS Safety Report 5141199-1 (Version None)
Quarter: 2006Q4

REPORT INFORMATION
  Report Type: 
  Country: None (occurrence: None)
  Receive Date: 20061101
  Receipt Date: 20061023
  Transmission Date: 20070319
  Serious: Yes (Hospitalization)
  Sender: FDA-Public Use
  Company Number: PHHO2006AR17765

PATIENT
  Age: 66 Year
  Sex: Female

DRUGS (1)
  1. ZELMAC / HTF 919A [Suspect]
     Indication: CONSTIPATION
     Dosage: BID
     Dates: start: 20050101

REACTIONS (2)
  - UMBILICAL HERNIA [None]
  - UMBILICAL HERNIA REPAIR [None]
